FAERS Safety Report 7388357-3 (Version None)
Quarter: 2011Q2

REPORT INFORMATION
  Report Type: 
  Country: None (occurrence: None)
  Receive Date: 20110401
  Receipt Date: 20110318
  Transmission Date: 20111010
  Serious: Yes (Other)
  Sender: FDA-Public Use
  Company Number: PHHY2011US16958

PATIENT
  Sex: Male
  Weight: 84.807 kg

DRUGS (2)
  1. GLEEVEC [Suspect]
     Indication: NEOPLASM MALIGNANT
     Dosage: 400 MG, BID
     Route: 048
     Dates: start: 20101201, end: 20110310
  2. GLEEVEC [Suspect]
     Indication: GASTROINTESTINAL STROMAL TUMOUR

REACTIONS (2)
  - METASTASES TO LIVER [None]
  - NO THERAPEUTIC RESPONSE [None]
